FAERS Safety Report 14873185 (Version 1)
Quarter: 2018Q2

REPORT INFORMATION
  Report Type: Other
  Country: IT (occurrence: IT)
  Receive Date: 20180510
  Receipt Date: 20180510
  Transmission Date: 20180711
  Serious: Yes (Hospitalization, Other)
  Sender: FDA-Public Use
  Company Number: IT-APOTEX-2018AP013013

PATIENT
  Age: 50 Year
  Sex: Female

DRUGS (3)
  1. PAROXETINE. [Suspect]
     Active Substance: PAROXETINE
     Dosage: IN TOTAL
     Route: 048
  2. VATRAN [Suspect]
     Active Substance: DIAZEPAM
     Indication: INTENTIONAL SELF-INJURY
     Dosage: IN TOTAL
     Route: 048
  3. QUENTIAX [Suspect]
     Active Substance: QUETIAPINE FUMARATE
     Indication: INTENTIONAL SELF-INJURY
     Dosage: IN TOTAL
     Route: 048

REACTIONS (5)
  - Oxygen saturation decreased [Recovered/Resolved]
  - Drug abuse [Recovered/Resolved]
  - Alcohol interaction [Recovered/Resolved]
  - Sopor [Recovered/Resolved]
  - Tachycardia [Recovered/Resolved]

NARRATIVE: CASE EVENT DATE: 20180125
